FAERS Safety Report 14619863 (Version 1)
Quarter: 2018Q1

REPORT INFORMATION
  Report Type: Spontaneous
  Country: IT (occurrence: IT)
  Receive Date: 20180309
  Receipt Date: 20180309
  Transmission Date: 20180509
  Serious: Yes (Hospitalization)
  Sender: FDA-Public Use
  Company Number: IT-FERRINGPH-2018FE01139

PATIENT

DRUGS (8)
  1. FIRMAGON [Suspect]
     Active Substance: DEGARELIX ACETATE
     Indication: PROSTATE CANCER
     Dosage: 80 MG, UNK
     Route: 058
  2. SANDIMMUN NEORAL [Concomitant]
     Active Substance: CYCLOSPORINE
     Dosage: ()
  3. URBASON                            /00049601/ [Concomitant]
     Active Substance: METHYLPREDNISOLONE
     Dosage: ()
  4. ENAPREN [Concomitant]
     Active Substance: ENALAPRIL MALEATE
     Dosage: ()
  5. CERTICAN [Concomitant]
     Active Substance: EVEROLIMUS
     Indication: RENAL TRANSPLANT
     Dosage: ()
  6. ROCALTROL [Concomitant]
     Active Substance: CALCITRIOL
     Dosage: ()
  7. ARANESP [Concomitant]
     Active Substance: DARBEPOETIN ALFA
     Dosage: ()
  8. NORVASC [Concomitant]
     Active Substance: AMLODIPINE BESYLATE
     Dosage: ()

REACTIONS (1)
  - Tongue oedema [Recovering/Resolving]

NARRATIVE: CASE EVENT DATE: 20180223
